FAERS Safety Report 5632588-7 (Version None)
Quarter: 2008Q1

REPORT INFORMATION
  Report Type: 
  Country: None (occurrence: None)
  Receive Date: 20080220
  Receipt Date: 20080208
  Transmission Date: 20080703
  Serious: Yes (Other)
  Sender: FDA-Public Use
  Company Number: US-PFIZER INC-2008012958

PATIENT
  Sex: Female
  Weight: 61.363 kg

DRUGS (3)
  1. LYRICA [Suspect]
     Indication: NERVE COMPRESSION
  2. NEURONTIN [Suspect]
  3. ETODOLAC [Concomitant]

REACTIONS (5)
  - BACK DISORDER [None]
  - DIZZINESS [None]
  - DRUG INEFFECTIVE [None]
  - ILL-DEFINED DISORDER [None]
  - OEDEMA [None]
